APPROVED DRUG PRODUCT: VIBISONE
Active Ingredient: CYANOCOBALAMIN
Strength: 1MG/ML
Dosage Form/Route: INJECTABLE;INJECTION
Application: A080557 | Product #003 | TE Code: AP
Applicant: FRESENIUS KABI USA LLC
Approved: Approved Prior to Jan 1, 1982 | RLD: Yes | RS: Yes | Type: RX